FAERS Safety Report 7685791-9 (Version None)
Quarter: 2011Q3

REPORT INFORMATION
  Report Type: 
  Country: None (occurrence: None)
  Receive Date: 20110815
  Receipt Date: 20110815
  Transmission Date: 20111222
  Serious: Yes (Life-Threatening, Hospitalization, Other)
  Sender: FDA-Public Use
  Company Number: None

PATIENT
  Age: 43 Year
  Sex: Female
  Weight: 70 kg

DRUGS (1)
  1. EFFEXOR XR [Suspect]
     Indication: ANXIETY
     Dosage: 75MG
     Route: 048
     Dates: start: 20100625, end: 20110501

REACTIONS (10)
  - BLOOD CHOLESTEROL INCREASED [None]
  - WEIGHT INCREASED [None]
  - HEART RATE INCREASED [None]
  - VERTIGO [None]
  - HYPOTHYROIDISM [None]
  - FLUID RETENTION [None]
  - LOW DENSITY LIPOPROTEIN INCREASED [None]
  - TINNITUS [None]
  - CHEST PAIN [None]
  - FOOD ALLERGY [None]
